FAERS Safety Report 21845803 (Version 2)
Quarter: 2023Q2

REPORT INFORMATION
  Report Type: Report from Study
  Country: US (occurrence: US)
  Receive Date: 20230111
  Receipt Date: 20230414
  Transmission Date: 20230721
  Serious: No
  Sender: FDA-Public Use
  Company Number: US-ABBVIE-4234200

PATIENT
  Age: 21 Year
  Sex: Female

DRUGS (3)
  1. SKYRIZI [Suspect]
     Active Substance: RISANKIZUMAB-RZAA
     Indication: Psoriasis
     Dosage: STRENGTH: 150 MG?WEEK 4 AND THEN EVERY 12 WEEK THEREAFTER
     Route: 058
     Dates: start: 202211
  2. SKYRIZI [Suspect]
     Active Substance: RISANKIZUMAB-RZAA
     Dosage: STRENGTH: 150 MG?WEEK 0
     Dates: start: 202210, end: 202210
  3. SKYRIZI [Suspect]
     Active Substance: RISANKIZUMAB-RZAA
     Route: 058
     Dates: start: 20221009, end: 20230206

REACTIONS (6)
  - Dermatitis allergic [Unknown]
  - Pain of skin [Unknown]
  - Drug ineffective [Unknown]
  - Pruritus [Unknown]
  - Psoriasis [Unknown]
  - Skin exfoliation [Unknown]

NARRATIVE: CASE EVENT DATE: 20221201
